FAERS Safety Report 6449074-7 (Version None)
Quarter: 2009Q4

REPORT INFORMATION
  Report Type: 
  Country: None (occurrence: None)
  Receive Date: 20091120
  Receipt Date: 20091113
  Transmission Date: 20100525
  Serious: Yes (Hospitalization)
  Sender: FDA-Public Use
  Company Number: US-JNJFOC-20091007163

PATIENT
  Sex: Female
  Weight: 68.04 kg

DRUGS (19)
  1. ACETAMINOPHEN [Suspect]
     Dates: start: 20090914
  2. ACETAMINOPHEN [Suspect]
     Indication: PAIN
     Dates: start: 20090914
  3. BEVACIZUMAB [Suspect]
     Indication: COLORECTAL CANCER
     Route: 042
     Dates: start: 20090914, end: 20090914
  4. FLUOROURACIL [Suspect]
     Route: 040
     Dates: start: 20090914, end: 20090914
  5. FLUOROURACIL [Suspect]
     Indication: COLORECTAL CANCER
     Route: 040
     Dates: start: 20090914, end: 20090914
  6. CALCIUM FOLINATE [Suspect]
     Indication: COLORECTAL CANCER
     Route: 042
  7. OXALIPLATIN [Suspect]
     Indication: COLORECTAL CANCER
     Route: 042
  8. LORAZEPAM [Concomitant]
  9. LORAZEPAM [Concomitant]
     Indication: ANXIETY
  10. PROCHLORPERAZINE [Concomitant]
     Indication: NAUSEA
  11. K-DUR [Concomitant]
     Indication: HYPOKALAEMIA
  12. HYDROCHLOROTHIAZIDE [Concomitant]
     Indication: HYPERTENSION
  13. LISINOPRIL [Concomitant]
     Indication: HYPERTENSION
  14. MORPHINE [Concomitant]
     Indication: CHEST PAIN
  15. NITROGLYCERIN [Concomitant]
     Indication: CHEST PAIN
  16. OXYCODONE HCL [Concomitant]
     Indication: PAIN
  17. LIDOCAINE [Concomitant]
     Indication: OROPHARYNGEAL PAIN
  18. POTASSIUM CHLORIDE [Concomitant]
  19. POTASSIUM CHLORIDE [Concomitant]
     Indication: HYPOKALAEMIA

REACTIONS (2)
  - DEHYDRATION [None]
  - DYSPNOEA [None]
